FAERS Safety Report 9862919 (Version 2)
Quarter: 2014Q1

REPORT INFORMATION
  Report Type: Report from Study
  Country: CA (occurrence: CA)
  Receive Date: 20140203
  Receipt Date: 20140203
  Transmission Date: 20141002
  Serious: Yes (Other)
  Sender: FDA-Public Use
  Company Number: CA-BRISTOL-MYERS SQUIBB COMPANY-19813567

PATIENT
  Age: 65 Year
  Sex: Male

DRUGS (10)
  1. ORENCIA [Suspect]
     Indication: RHEUMATOID ARTHRITIS
     Dosage: 1DF=750 UNIT NOS?EXP:JUL2016
     Dates: start: 20070329
  2. ARAVA [Concomitant]
  3. CELEBREX [Concomitant]
  4. NORVASC [Concomitant]
  5. ACTONEL [Concomitant]
  6. NOVAMILOR [Concomitant]
  7. GLUCONORM [Concomitant]
  8. METFORMIN [Concomitant]
  9. SYNTHROID [Concomitant]
  10. AVAPRO [Concomitant]

REACTIONS (4)
  - Glaucoma [Unknown]
  - Herpes zoster [Recovering/Resolving]
  - Hypothyroidism [Unknown]
  - Dry eye [Unknown]
